FAERS Safety Report 5239310-7 (Version None)
Quarter: 2007Q1

REPORT INFORMATION
  Report Type: 
  Country: None (occurrence: None)
  Receive Date: 20070216
  Receipt Date: 20070206
  Transmission Date: 20070707
  Serious: Yes (Hospitalization)
  Sender: FDA-Public Use
  Company Number: FR-JNJFOC-20070104435

PATIENT
  Age: 42 Year
  Sex: Female
  Weight: 60 kg

DRUGS (5)
  1. REMICADE [Suspect]
     Indication: CROHN'S DISEASE
     Route: 042
  2. REMICADE [Suspect]
     Indication: ANKYLOSING SPONDYLITIS
     Route: 042
  3. MORPHINE SUL INJ [Concomitant]
     Dosage: LONG TERM TREATMENT
     Route: 065
  4. DAFALGAN [Concomitant]
     Dosage: LONG TERM TREATMENT
     Route: 065
  5. KETOPROFEN [Concomitant]
     Dosage: LONG TERM TREATMENT
     Route: 065

REACTIONS (10)
  - ARTHRALGIA [None]
  - ASTHENIA [None]
  - HEADACHE [None]
  - HYPERSENSITIVITY [None]
  - INFLAMMATION [None]
  - MALAISE [None]
  - MUSCULOSKELETAL PAIN [None]
  - PAIN [None]
  - SYNCOPE VASOVAGAL [None]
  - VOMITING [None]
